FAERS Safety Report 15279967 (Version 1)
Quarter: 2018Q3

REPORT INFORMATION
  Report Type: Spontaneous
  Country: US (occurrence: US)
  Receive Date: 20180730
  Receipt Date: 20180730
  Transmission Date: 20181010
  Serious: Yes (Hospitalization)
  Sender: FDA-Public Use
  Company Number: None

PATIENT
  Age: 37 Year
  Sex: Female
  Weight: 75.6 kg

DRUGS (1)
  1. DEPO?PROVERA [Suspect]
     Active Substance: MEDROXYPROGESTERONE ACETATE
     Indication: CONTRACEPTION
     Dosage: OTHER FREQUENCY:EVERY TWELVE WEEKS;?
     Route: 030
     Dates: start: 20170522, end: 20180112

REACTIONS (1)
  - Mastitis [None]

NARRATIVE: CASE EVENT DATE: 20180706
